FAERS Safety Report 9669880 (Version 1)
Quarter: 2013Q4

REPORT INFORMATION
  Report Type: Report from Study
  Country: KR (occurrence: KR)
  Receive Date: 20131105
  Receipt Date: 20131105
  Transmission Date: 20140711
  Serious: No
  Sender: FDA-Public Use
  Company Number: PHHY2013KR124204

PATIENT
  Age: 60 Year
  Sex: Female

DRUGS (3)
  1. AMN107 [Suspect]
     Indication: CHRONIC MYELOID LEUKAEMIA
     Dosage: 600 MG, UNK
     Route: 048
     Dates: start: 20121002
  2. TYLENOL ER [Concomitant]
     Indication: PAIN OF SKIN
     Dosage: 1950 MG, UNK
     Route: 048
     Dates: start: 20121023, end: 20121227
  3. SOLONDO [Concomitant]
     Indication: RASH
     Dosage: 10 MG, UNK
     Route: 048
     Dates: start: 20121023, end: 20121227

REACTIONS (1)
  - Upper respiratory tract infection [Recovered/Resolved]
